FAERS Safety Report 5102500-8 (Version None)
Quarter: 2006Q3

REPORT INFORMATION
  Report Type: 
  Country: None (occurrence: None)
  Receive Date: 20060907
  Receipt Date: 20060824
  Transmission Date: 20061208
  Serious: Yes (Other)
  Sender: FDA-Public Use
  Company Number: PAR_0776_2006

PATIENT
  Age: 28 Year
  Sex: Male

DRUGS (1)
  1. ISOPTIN [Suspect]
     Indication: CARDIAC HYPERTROPHY
     Dosage: DF UNK PO
     Route: 048
     Dates: start: 19990101, end: 20060201

REACTIONS (6)
  - INFERTILITY [None]
  - PREGNANCY OF PARTNER [None]
  - SPERMATOZOA ABNORMAL [None]
  - SPERMATOZOA PROGRESSIVE MOTILITY ABNORMAL [None]
  - TERATOSPERMIA [None]
  - UREAPLASMA INFECTION [None]
